FAERS Safety Report 5734665-9 (Version None)
Quarter: 2008Q2

REPORT INFORMATION
  Report Type: 
  Country: None (occurrence: None)
  Receive Date: 20080512
  Receipt Date: 20080507
  Transmission Date: 20081010
  Serious: Yes (Life-Threatening, Hospitalization, Other)
  Sender: FDA-Public Use
  Company Number: PHHY2008JP06600

PATIENT
  Sex: Female

DRUGS (2)
  1. ALENDRONATE SODIUM [Suspect]
     Indication: SUICIDE ATTEMPT
     Route: 048
  2. SLOW-K [Suspect]
     Indication: SUICIDE ATTEMPT
     Dosage: 54 G
     Route: 048

REACTIONS (6)
  - CARDIO-RESPIRATORY ARREST [None]
  - GASTRITIS HAEMORRHAGIC [None]
  - HYPERKALAEMIA [None]
  - LOSS OF CONSCIOUSNESS [None]
  - SUICIDE ATTEMPT [None]
  - VENTRICULAR FIBRILLATION [None]
